FAERS Safety Report 5277944-4 (Version None)
Quarter: 2007Q1

REPORT INFORMATION
  Report Type: 
  Country: None (occurrence: None)
  Receive Date: 20070321
  Receipt Date: 20070312
  Transmission Date: 20070707
  Serious: Yes (Other)
  Sender: FDA-Public Use
  Company Number: S07-USA-01121-01

PATIENT
  Sex: 0

DRUGS (6)
  1. CELEXA [Suspect]
  2. DARVOCET [Suspect]
  3. FLEXERIL [Suspect]
  4. INDERAL [Suspect]
  5. IMERTIX (NOS) [Suspect]
  6. NAPROXEN [Suspect]

REACTIONS (1)
  - DRUG SCREEN FALSE POSITIVE [None]
